FAERS Safety Report 6028247-1 (Version None)
Quarter: 2008Q4

REPORT INFORMATION
  Report Type: 
  Country: None (occurrence: None)
  Receive Date: 20081231
  Receipt Date: 20081231
  Transmission Date: 20090506
  Serious: Yes (Hospitalization)
  Sender: FDA-Public Use
  Company Number: None

PATIENT
  Sex: Female
  Weight: 59 kg

DRUGS (3)
  1. FLUOROURACIL [Suspect]
     Dosage: 6100 MG
     Dates: end: 20081209
  2. BEVACIZUMAB (RHUMAB VEGF) [Suspect]
     Dosage: 600 MG
     Dates: end: 20081209
  3. LEUCOVORIN CALCIUM [Suspect]
     Dosage: 660 MG
     Dates: end: 20081104

REACTIONS (7)
  - ASTHENIA [None]
  - BLOOD ALBUMIN DECREASED [None]
  - BLOOD CREATININE INCREASED [None]
  - DYSPHAGIA [None]
  - FATIGUE [None]
  - HYPOPHAGIA [None]
  - URINARY TRACT INFECTION [None]
